FAERS Safety Report 4998122-X (Version None)
Quarter: 2006Q2

REPORT INFORMATION
  Report Type: 
  Country: None (occurrence: None)
  Receive Date: 20060510
  Receipt Date: 20051005
  Transmission Date: 20061013
  Serious: Yes (Hospitalization, Disabling)
  Sender: FDA-Public Use
  Company Number: PR-MERCK-0510USA04194

PATIENT
  Age: 43 Year
  Sex: Male
  Weight: 95 kg

DRUGS (2)
  1. VIOXX [Suspect]
     Indication: MYALGIA
     Route: 048
     Dates: start: 20010101, end: 20010601
  2. VIOXX [Suspect]
     Route: 048
     Dates: start: 20010101, end: 20010601

REACTIONS (2)
  - MYOCARDIAL INFARCTION [None]
  - PRESCRIBED OVERDOSE [None]
